FAERS Safety Report 9577601 (Version 1)
Quarter: 2013Q4

REPORT INFORMATION
  Report Type: Spontaneous
  Country: US (occurrence: US)
  Receive Date: 20131001
  Receipt Date: 20131001
  Transmission Date: 20140711
  Serious: No
  Sender: FDA-Public Use
  Company Number: US-AMGEN-USASP2013009091

PATIENT
  Sex: Male
  Weight: 86.17 kg

DRUGS (6)
  1. ENBREL [Suspect]
     Indication: PSORIATIC ARTHROPATHY
     Dosage: UNK
  2. FISH OIL [Concomitant]
     Dosage: UNK
  3. DOXYCYCLINE [Concomitant]
     Dosage: UNK
  4. OXYCODONE [Concomitant]
     Dosage: UNK
  5. PRILOSEC                           /00661201/ [Concomitant]
     Dosage: UNK
  6. SUDAFED                            /00076302/ [Concomitant]
     Dosage: UNK

REACTIONS (1)
  - Rash [Unknown]
